FAERS Safety Report 22859174 (Version 15)
Quarter: 2025Q2

REPORT INFORMATION
  Report Type: Report from Study
  Country: US (occurrence: US)
  Receive Date: 20230824
  Receipt Date: 20250523
  Transmission Date: 20250716
  Serious: Yes (Other)
  Sender: INSMED
  Company Number: US-INSMED, INC.-2023-02792-US

PATIENT
  Sex: Male

DRUGS (1)
  1. ARIKAYCE [Suspect]
     Active Substance: AMIKACIN
     Indication: Mycobacterial infection
     Dosage: 590 MILLIGRAM, QD
     Route: 055
     Dates: start: 20210604

REACTIONS (3)
  - Emergency care [Unknown]
  - Intentional dose omission [Unknown]
  - Product dose omission issue [Unknown]
